FAERS Safety Report 25970816 (Version 1)
Quarter: 2025Q4

REPORT INFORMATION
  Report Type: Report from Study
  Country: CA (occurrence: CA)
  Receive Date: 20251028
  Receipt Date: 20251028
  Transmission Date: 20260118
  Serious: Yes (Hospitalization)
  Sender: PFIZER
  Company Number: CA-PFIZER INC-202500212557

PATIENT
  Age: 64 Year
  Sex: Male

DRUGS (36)
  1. RITUXIMAB [Suspect]
     Active Substance: RITUXIMAB
     Indication: Acquired epidermolysis bullosa
     Dosage: 1000 MG
     Route: 042
  2. ACRIVASTINE [Concomitant]
     Active Substance: ACRIVASTINE
     Dosage: 50 MG
     Route: 048
  3. AMLODIPINE [Concomitant]
     Active Substance: AMLODIPINE BESYLATE
  4. BIMATOPROST [Concomitant]
     Active Substance: BIMATOPROST
     Dosage: NOT SPECIFIED
  5. BUDESONIDE\FORMOTEROL FUMARATE [Concomitant]
     Active Substance: BUDESONIDE\FORMOTEROL FUMARATE
  6. CENTELLA ASIATICA/COPPER GLUCONATE/HYALURONATE SODIUM/MANGANESE GLUCON [Concomitant]
  7. CHLORTHALIDONE [Concomitant]
     Active Substance: CHLORTHALIDONE
  8. CHLORTHALIDONE [Concomitant]
     Active Substance: CHLORTHALIDONE
  9. FERROUS FUMARATE [Concomitant]
     Active Substance: FERROUS FUMARATE
     Dosage: UNK
  10. FERROUS FUMARATE [Concomitant]
     Active Substance: FERROUS FUMARATE
     Dosage: NOT SPECIFIED
  11. HYDROCHLOROTHIAZIDE [Concomitant]
     Active Substance: HYDROCHLOROTHIAZIDE
  12. HYDROCHLOROTHIAZIDE [Concomitant]
     Active Substance: HYDROCHLOROTHIAZIDE
  13. INDAPAMIDE [Concomitant]
     Active Substance: INDAPAMIDE
  14. INDAPAMIDE [Concomitant]
     Active Substance: INDAPAMIDE
  15. LANSOPRAZOLE [Concomitant]
     Active Substance: LANSOPRAZOLE
     Dosage: UNK
  16. LANSOPRAZOLE [Concomitant]
     Active Substance: LANSOPRAZOLE
     Dosage: CAPSULE, DELAYED RELEASE
  17. LEVEMIR [Concomitant]
     Active Substance: INSULIN DETEMIR
     Dosage: SOLUTION SUBCUTANEOUS
  18. LYRICA [Concomitant]
     Active Substance: PREGABALIN
  19. METHYLPREDNISOLONE SODIUM SUCCINATE [Concomitant]
     Active Substance: METHYLPREDNISOLONE SODIUM SUCCINATE
     Dosage: 100 MG
     Route: 042
  20. MYCOPHENOLATE MOFETIL [Concomitant]
     Active Substance: MYCOPHENOLATE MOFETIL
  21. OMNARIS [Concomitant]
     Active Substance: CICLESONIDE
     Dosage: SPRAY, METERED DOSE
  22. OMNARIS [Concomitant]
     Active Substance: CICLESONIDE
     Dosage: UNK
  23. PANTOPRAZOLE [Concomitant]
     Active Substance: PANTOPRAZOLE
     Dosage: NOT SPECIFIED
  24. PANTOPRAZOLE [Concomitant]
     Active Substance: PANTOPRAZOLE
     Dosage: UNK
  25. PERINDOPRIL [Concomitant]
     Active Substance: PERINDOPRIL
  26. PERINDOPRIL ARGININE [Concomitant]
     Active Substance: PERINDOPRIL ARGININE
  27. PREDNISONE [Concomitant]
     Active Substance: PREDNISONE
     Dosage: NOT SPECIFIED
  28. PREGABALIN [Concomitant]
     Active Substance: PREGABALIN
  29. ROSUVASTATIN [Concomitant]
     Active Substance: ROSUVASTATIN
     Dosage: NOT SPECIFIED
  30. SERTRALINE [Concomitant]
     Active Substance: SERTRALINE HYDROCHLORIDE
  31. SILVER SULFADIAZINE [Concomitant]
     Active Substance: SILVER SULFADIAZINE
     Dosage: NOT SPECIFIED
  32. SULFASALAZINE [Concomitant]
     Active Substance: SULFASALAZINE
     Dosage: 500 MG, 2X/DAY
     Route: 048
  33. TIMOLOL MALEATE [Concomitant]
     Active Substance: TIMOLOL MALEATE
  34. TYLENOL [Concomitant]
     Active Substance: ACETAMINOPHEN
     Dosage: 650 MG
     Route: 048
  35. TYLENOL 8 HR ARTHRITIS PAIN [Concomitant]
     Active Substance: ACETAMINOPHEN
     Dosage: TABLET (EXTENDED-RELEASE)
  36. ZOPICLONE [Concomitant]
     Active Substance: ZOPICLONE

REACTIONS (12)
  - Gastrooesophageal reflux disease [Recovered/Resolved]
  - Pneumonia [Recovered/Resolved]
  - Actinic keratosis [Recovered/Resolved]
  - Blister [Recovered/Resolved]
  - Bowen^s disease [Recovered/Resolved]
  - Chronic kidney disease [Recovered/Resolved]
  - Dyslipidaemia [Recovered/Resolved]
  - Glaucoma [Recovered/Resolved]
  - Osteoarthritis [Recovered/Resolved]
  - Skin exfoliation [Recovered/Resolved]
  - Spinal laminectomy [Recovered/Resolved]
  - Off label use [Unknown]
